FAERS Safety Report 6810269-1 (Version None)
Quarter: 2010Q2

REPORT INFORMATION
  Report Type: 
  Country: None (occurrence: None)
  Receive Date: 20100630
  Receipt Date: 20100621
  Transmission Date: 20101027
  Serious: Yes (Hospitalization)
  Sender: FDA-Public Use
  Company Number: ZA-ABBOTT-10P-143-0641184-00

PATIENT
  Age: 5 Year
  Sex: Male
  Weight: 20.95 kg

DRUGS (5)
  1. RITONAVIR ORAL SOLUTION [Suspect]
     Indication: HIV INFECTION
     Route: 048
     Dates: start: 20060607, end: 20100413
  2. BMS [Concomitant]
     Indication: HIV INFECTION
     Route: 048
     Dates: start: 20060607, end: 20100413
  3. LAMIVUDINE (EPIVIR HBV) [Concomitant]
     Indication: HIV INFECTION
     Route: 048
     Dates: start: 20060607, end: 20100413
  4. AZT [Concomitant]
     Indication: HIV INFECTION
     Route: 048
     Dates: start: 20060607, end: 20100413
  5. MULTI-VITAMIN [Concomitant]
     Indication: DRUG USE FOR UNKNOWN INDICATION

REACTIONS (1)
  - CELLULITIS [None]
